FAERS Safety Report 7324138-4 (Version None)
Quarter: 2011Q1

REPORT INFORMATION
  Report Type: 
  Country: None (occurrence: None)
  Receive Date: 20110301
  Receipt Date: 20110221
  Transmission Date: 20110831
  Serious: Yes (Life-Threatening, Hospitalization, Other)
  Sender: FDA-Public Use
  Company Number: GB-MERCK-1005GBR00094

PATIENT
  Age: 59 Year
  Sex: Male

DRUGS (19)
  1. FLOXACILLIN [Concomitant]
     Indication: ARTHRITIS BACTERIAL
     Route: 065
  2. FOLIC ACID [Concomitant]
     Route: 065
  3. ZOCOR [Suspect]
     Route: 048
  4. ALFACALCIDOL [Concomitant]
     Route: 065
  5. EPOETIN [Concomitant]
     Route: 065
  6. GENTAMICIN [Concomitant]
     Route: 065
  7. GLICLAZIDE [Concomitant]
     Indication: DIABETES MELLITUS
     Route: 065
  8. CLARITHROMYCIN [Concomitant]
     Route: 065
  9. FLOXACILLIN [Concomitant]
     Indication: OSTEOMYELITIS
     Route: 065
  10. ASCORBIC ACID AND VITAMIN B (UNSPECIFIED) [Concomitant]
     Route: 065
  11. ATENOLOL [Concomitant]
     Route: 065
  12. CALCIUM CARBONATE [Concomitant]
     Route: 065
  13. DIPYRIDAMOLE [Concomitant]
     Route: 065
  14. FUSIDIC ACID [Suspect]
     Indication: ARTHRITIS BACTERIAL
     Route: 065
  15. IRON SUCROSE [Concomitant]
     Route: 065
  16. LANSOPRAZOLE [Concomitant]
     Route: 065
  17. ALLOPURINOL [Concomitant]
     Route: 065
  18. CEFTRIAXONE SODIUM [Concomitant]
     Route: 065
  19. CLOPIDOGREL BISULFATE [Concomitant]
     Route: 065

REACTIONS (3)
  - RHABDOMYOLYSIS [None]
  - DRUG INTERACTION [None]
  - PARAPARESIS [None]
